FAERS Safety Report 11103440 (Version 2)
Quarter: 2015Q2

REPORT INFORMATION
  Report Type: Spontaneous
  Country: FR (occurrence: FR)
  Receive Date: 20150511
  Receipt Date: 20150527
  Transmission Date: 20150821
  Serious: Yes (Hospitalization)
  Sender: FDA-Public Use
  Company Number: FR-ACTAVIS-2015-09420

PATIENT
  Age: 39 Year
  Sex: Male

DRUGS (1)
  1. PYLERA [Suspect]
     Active Substance: BISMUTH SUBCITRATE POTASSIUM\METRONIDAZOLE\TETRACYCLINE HYDROCHLORIDE
     Indication: PEPTIC ULCER
     Dosage: AS RECOMMENDED
     Route: 048
     Dates: start: 20150405, end: 20150411

REACTIONS (6)
  - Headache [Recovering/Resolving]
  - Influenza like illness [Recovering/Resolving]
  - Syncope [Recovered/Resolved]
  - Hypotension [Recovering/Resolving]
  - Somnolence [Recovering/Resolving]
  - Dyskinesia [Recovered/Resolved]

NARRATIVE: CASE EVENT DATE: 20150407
